FAERS Safety Report 6409759-5 (Version None)
Quarter: 2009Q4

REPORT INFORMATION
  Report Type: 
  Country: None (occurrence: None)
  Receive Date: 20091022
  Receipt Date: 20091013
  Transmission Date: 20100525
  Serious: Yes (Other)
  Sender: FDA-Public Use
  Company Number: PHEH2009US07395

PATIENT
  Sex: Male
  Weight: 66.667 kg

DRUGS (6)
  1. CLOZARIL [Suspect]
     Indication: MANIA
     Dosage: 400 MG, QD
     Route: 048
     Dates: start: 20090129
  2. CLOZARIL [Suspect]
     Dosage: 200 MG, QD
     Route: 048
  3. HALDOL [Concomitant]
     Indication: PSYCHOTIC DISORDER
     Dosage: 20 MG, QD
     Route: 048
     Dates: start: 20080801
  4. CELEXA [Concomitant]
     Indication: DEPRESSION
     Dosage: 20 MG, QD AM
     Route: 048
     Dates: start: 20080801
  5. CONCERTA [Concomitant]
     Indication: ATTENTION DEFICIT/HYPERACTIVITY DISORDER
     Dosage: 72 MG, QD AM
     Route: 048
     Dates: start: 20080801
  6. DEPAKOTE [Concomitant]
     Dosage: 500 MG, TID
     Route: 048

REACTIONS (4)
  - COGNITIVE DISORDER [None]
  - DYSARTHRIA [None]
  - DYSGRAPHIA [None]
  - SPEECH DISORDER [None]
